FAERS Safety Report 17892930 (Version 1)
Quarter: 2020Q2

REPORT INFORMATION
  Report Type: Other
  Country: FR (occurrence: FR)
  Receive Date: 20200613
  Receipt Date: 20200613
  Transmission Date: 20200714
  Serious: Yes (Death)
  Sender: FDA-Public Use
  Company Number: FR-CADILA HEALTHCARE LIMITED-FR-ZYDUS-052012

PATIENT

DRUGS (3)
  1. DICLOFENAC [Suspect]
     Active Substance: DICLOFENAC
     Indication: MYALGIA
     Dosage: UNK
     Route: 061
     Dates: start: 20200313
  2. PIVALONE [TIXOCORTOL PIVALATE] [Suspect]
     Active Substance: TIXOCORTOL PIVALATE
     Indication: RHINITIS
     Dosage: UNK
     Route: 045
     Dates: start: 20200313
  3. SPIFEN [Suspect]
     Active Substance: IBUPROFEN
     Indication: INFLUENZA LIKE ILLNESS
     Dosage: 1200 MILLIGRAM
     Route: 048
     Dates: start: 20200313, end: 20200315

REACTIONS (3)
  - Coronavirus infection [Fatal]
  - Condition aggravated [Fatal]
  - Acute respiratory distress syndrome [Fatal]

NARRATIVE: CASE EVENT DATE: 20200318
